FAERS Safety Report 17191210 (Version 1)
Quarter: 2019Q4

REPORT INFORMATION
  Report Type: Spontaneous
  Country: DE (occurrence: DE)
  Receive Date: 20191223
  Receipt Date: 20191223
  Transmission Date: 20200122
  Serious: Yes (Hospitalization)
  Sender: FDA-Public Use
  Company Number: DE-PFIZER INC-2019549475

PATIENT
  Age: 55 Year
  Sex: Female

DRUGS (4)
  1. PANTOPRAZOL [PANTOPRAZOLE] [Concomitant]
     Active Substance: PANTOPRAZOLE
     Dosage: 40 MG, UNK (0-0-1-0)
  2. IBUPROFEN. [Suspect]
     Active Substance: IBUPROFEN
     Dosage: 600 MG, AS NEEDED
  3. FOLSAEURE [Concomitant]
     Active Substance: FOLIC ACID
     Dosage: 5 MG, 1X/DAY
  4. METHOTREXATE SODIUM. [Suspect]
     Active Substance: METHOTREXATE SODIUM
     Dosage: 7.5 MG, 1X/DAY

REACTIONS (6)
  - Dizziness [Unknown]
  - Nausea [Unknown]
  - Haematochezia [Unknown]
  - Abdominal pain lower [Unknown]
  - Diarrhoea [Unknown]
  - Abdominal pain [Unknown]
